FAERS Safety Report 9305784 (Version 1)
Quarter: 2013Q2

REPORT INFORMATION
  Report Type: Spontaneous
  Country: US (occurrence: US)
  Receive Date: 20130523
  Receipt Date: 20130523
  Transmission Date: 20140414
  Serious: No
  Sender: FDA-Public Use
  Company Number: US-PFIZER INC-2013153162

PATIENT
  Sex: Female

DRUGS (3)
  1. DORYX [Suspect]
     Dosage: UNK
  2. DILAUDID [Suspect]
     Dosage: UNK
  3. HYDROCODONE [Suspect]
     Dosage: UNK

REACTIONS (1)
  - Drug hypersensitivity [Unknown]
